FAERS Safety Report 15310046 (Version 1)
Quarter: 2018Q3

REPORT INFORMATION
  Report Type: Spontaneous
  Country: BE (occurrence: BE)
  Receive Date: 20180823
  Receipt Date: 20180823
  Transmission Date: 20181010
  Serious: Yes (Death, Hospitalization)
  Sender: FDA-Public Use
  Company Number: BE-ACCORD-071064

PATIENT
  Age: 81 Year
  Sex: Female

DRUGS (11)
  1. MIRTAZAPINE. [Suspect]
     Active Substance: MIRTAZAPINE
     Indication: DEPRESSION
     Dosage: I DO NOT KNOW IF THE TREATMENT WAS ALREADY STARTED WHEN THE EFFECTS APPEARED II
     Route: 048
  2. OMEPRAZOLE. [Suspect]
     Active Substance: OMEPRAZOLE
     Indication: PRODUCT USED FOR UNKNOWN INDICATION
     Dosage: TRAITEMENT CHRONIQUE
     Route: 048
  3. SERTRALINE [Suspect]
     Active Substance: SERTRALINE HYDROCHLORIDE
     Indication: DEPRESSION
     Dosage: CHRONIC TREATMEN ?DEGRESSIVE DOSE TO BE REPLACED BY MIRTAZAPINE
     Route: 048
  4. CORDARONE [Suspect]
     Active Substance: AMIODARONE HYDROCHLORIDE
     Indication: PRODUCT USED FOR UNKNOWN INDICATION
     Dosage: TRAITEMENT CHRONIQUE
     Route: 048
  5. LASIX [Suspect]
     Active Substance: FUROSEMIDE
     Indication: PRODUCT USED FOR UNKNOWN INDICATION
     Dosage: TRAITEMENT CHRONIQUE
     Route: 048
  6. ERYTHROMYCIN. [Suspect]
     Active Substance: ERYTHROMYCIN
     Indication: PRODUCT USED FOR UNKNOWN INDICATION
     Route: 048
     Dates: start: 20180102, end: 20180109
  7. HYDRALAZINE [Concomitant]
     Active Substance: HYDRALAZINE HYDROCHLORIDE
     Dosage: TRAITEMENT CHRONIQUE
     Route: 048
  8. MOXONIDINE [Concomitant]
     Active Substance: MOXONIDINE
     Dosage: TRAITEMENT CHRONIQUE
     Route: 048
  9. ATENOLOL. [Concomitant]
     Active Substance: ATENOLOL
     Dosage: TRAITEMENT CHRONIQUE (0.5 CO LE MATIN  1 CO LE SOIR)
     Route: 048
  10. ASAFLOW [Concomitant]
     Active Substance: ASPIRIN
     Dosage: CHRONIC TREATMENT
     Route: 048
  11. ALLOPURINOL. [Concomitant]
     Active Substance: ALLOPURINOL
     Dosage: TRAITEMENT CHRONIQUE
     Route: 048

REACTIONS (3)
  - Electrocardiogram QT prolonged [Fatal]
  - Death [Fatal]
  - Drug interaction [Fatal]

NARRATIVE: CASE EVENT DATE: 20180122
